FAERS Safety Report 10087311 (Version 2)
Quarter: 2014Q2

REPORT INFORMATION
  Report Type: Spontaneous
  Country: US (occurrence: US)
  Receive Date: 20140418
  Receipt Date: 20140612
  Transmission Date: 20141212
  Serious: Yes (Death, Hospitalization)
  Sender: FDA-Public Use
  Company Number: US-B.I. PHARMACEUTICALS,INC./RIDGEFIELD-2014-BI-17556BP

PATIENT
  Age: 83 Year
  Sex: Female
  Weight: 62.6 kg

DRUGS (19)
  1. PRADAXA [Suspect]
     Indication: ATRIAL FIBRILLATION
     Dosage: 150 MG
     Route: 048
     Dates: start: 20140320, end: 20140415
  2. NITROSTAT [Concomitant]
     Route: 060
  3. XALATAN [Concomitant]
     Dosage: DOSE PER APPLICATION: 0.005 %, ROUTE: OPHTHALMIC
     Route: 050
  4. ASPIRIN [Concomitant]
     Dosage: 81 MG
     Route: 048
  5. HYDRALAZINE HCL [Concomitant]
     Dosage: 100 MG
     Route: 048
  6. CLONIDINE HCL [Concomitant]
     Indication: BLOOD PRESSURE INCREASED
     Dosage: 2.4 MG
     Route: 048
  7. LOVASTATIN [Concomitant]
     Dosage: 20 MG
     Route: 048
  8. MULTIVITAMIN [Concomitant]
     Dosage: 1 ANZ
     Route: 048
  9. LEVOTHYROXINE SODIUM [Concomitant]
     Dosage: 100 MCG
     Route: 048
  10. ACETAMINOPHEN [Concomitant]
     Dosage: 4000 MCG
     Route: 048
  11. GLIPIZIDE [Concomitant]
     Dosage: 2.5 MG
     Route: 048
  12. LOSARTAN POTASSIUM [Concomitant]
     Dosage: 100 MG
     Route: 048
  13. FLUTICASONE PROPIONATE [Concomitant]
     Dosage: 50 MCG
     Route: 045
  14. CYCLOPHOSPHAMIDE [Concomitant]
     Dosage: DAILY DOSE :1 MG/KG
     Route: 048
  15. PREDNISONE [Concomitant]
     Dosage: 10 MG
     Route: 048
  16. LASIX [Concomitant]
     Route: 048
  17. AMLODIPINE BESYLATE [Concomitant]
     Route: 048
  18. LOPRESSOR [Concomitant]
     Dosage: 200 MG
     Route: 048
  19. AMIODARONE HCL [Concomitant]
     Dosage: 400 MG
     Route: 048

REACTIONS (2)
  - Perforated ulcer [Fatal]
  - Gastrointestinal haemorrhage [Fatal]
